FAERS Safety Report 7636394-3 (Version None)
Quarter: 2011Q3

REPORT INFORMATION
  Report Type: 
  Country: None (occurrence: None)
  Receive Date: 20110719
  Receipt Date: 20110705
  Transmission Date: 20111222
  Serious: Yes (Death)
  Sender: FDA-Public Use
  Company Number: B0733068A

PATIENT

DRUGS (3)
  1. ZIDOVUDINE [Suspect]
     Dosage: INTRAVENOUS
     Route: 042
  2. LAMIVUDINE [Suspect]
     Dosage: ORAL
     Route: 048
  3. NEVIRAPINE [Suspect]
     Dosage: ORAL
     Route: 048

REACTIONS (2)
  - DEATH NEONATAL [None]
  - NECROTISING ENTEROCOLITIS NEONATAL [None]
